FAERS Safety Report 16443501 (Version 1)
Quarter: 2019Q2

REPORT INFORMATION
  Report Type: Spontaneous
  Country: IT (occurrence: IT)
  Receive Date: 20190618
  Receipt Date: 20190618
  Transmission Date: 20190711
  Serious: Yes (Other)
  Sender: FDA-Public Use
  Company Number: IT-TEVA-2019-IT-1063354

PATIENT
  Age: 61 Year
  Sex: Male

DRUGS (1)
  1. NAPROXEN SODIUM. [Suspect]
     Active Substance: NAPROXEN SODIUM
     Indication: ARTHRALGIA
     Route: 048
     Dates: start: 20190516, end: 20190516

REACTIONS (6)
  - Anaphylactic shock [Recovering/Resolving]
  - Rash pruritic [Recovering/Resolving]
  - Hypersensitivity [Recovering/Resolving]
  - Tremor [Recovering/Resolving]
  - Chest pain [Recovering/Resolving]
  - Loss of consciousness [Recovering/Resolving]

NARRATIVE: CASE EVENT DATE: 20190516
